FAERS Safety Report 6369298-7 (Version None)
Quarter: 2009Q3

REPORT INFORMATION
  Report Type: 
  Country: None (occurrence: None)
  Receive Date: 20090922
  Receipt Date: 20081022
  Transmission Date: 20100115
  Serious: No
  Sender: FDA-Public Use
  Company Number: US-ALLERGAN-0813388US

PATIENT
  Sex: Female

DRUGS (1)
  1. FML [Suspect]
     Indication: INFLAMMATION
     Dosage: UNK, UNKNOWN
     Route: 047
     Dates: start: 20081020

REACTIONS (2)
  - EYE PRURITUS [None]
  - LACRIMATION INCREASED [None]
